FAERS Safety Report 10681721 (Version 1)
Quarter: 2014Q4

REPORT INFORMATION
  Report Type: Spontaneous
  Country: AT (occurrence: None)
  Receive Date: 20141224
  Receipt Date: 20141224
  Transmission Date: 20150529
  Serious: Yes (Life-Threatening)
  Sender: FDA-Public Use
  Company Number: AT-BBM-201400987

PATIENT
  Age: 11 Year
  Sex: Female

DRUGS (2)
  1. CYTARABINE. [Concomitant]
     Active Substance: CYTARABINE
  2. PARENTERAL NUTRITION [Suspect]
     Active Substance: AMINO ACIDS\DEXTROSE\ELECTROLYTES NOS
     Indication: ACUTE MYELOID LEUKAEMIA

REACTIONS (1)
  - Histiocytosis haematophagic [None]
